FAERS Safety Report 4741720-9 (Version None)
Quarter: 2005Q3

REPORT INFORMATION
  Report Type: 
  Country: None (occurrence: None)
  Receive Date: 20050804
  Receipt Date: 20050413
  Transmission Date: 20060218
  Serious: No
  Sender: FDA-Public Use
  Company Number: WAES 0504USA02247

PATIENT

DRUGS (2)
  1. EMEND [Suspect]
     Dosage: PO
     Route: 048
  2. ANTINEOPLASTIC (UNSPECIFIED) [Concomitant]

REACTIONS (2)
  - EUPHORIC MOOD [None]
  - FEELING ABNORMAL [None]
